FAERS Safety Report 18397100 (Version 1)
Quarter: 2020Q4

REPORT INFORMATION
  Report Type: Spontaneous
  Country: GB (occurrence: GB)
  Receive Date: 20201019
  Receipt Date: 20201019
  Transmission Date: 20210114
  Serious: Yes (Life-Threatening, Other)
  Sender: FDA-Public Use
  Company Number: GB-TEVA-2020-GB-1838790

PATIENT
  Age: 67 Year
  Sex: Male
  Weight: 63.5 kg

DRUGS (3)
  1. ATORVASTATIN CALCIUM TRIHYDRATE [Suspect]
     Active Substance: ATORVASTATIN CALCIUM
     Indication: HEART VALVE OPERATION
     Dosage: 40 MG
     Route: 048
     Dates: start: 201910, end: 20200716
  2. DEPAKOTE [Concomitant]
     Active Substance: DIVALPROEX SODIUM
  3. VENLAFAXINE HYDROCHLORIDE. [Concomitant]
     Active Substance: VENLAFAXINE HYDROCHLORIDE

REACTIONS (1)
  - Balance disorder [Recovered/Resolved with Sequelae]

NARRATIVE: CASE EVENT DATE: 201910
